FAERS Safety Report 20919655 (Version 9)
Quarter: 2022Q4

REPORT INFORMATION
  Report Type: Spontaneous
  Country: US (occurrence: US)
  Receive Date: 20220606
  Receipt Date: 20221219
  Transmission Date: 20230113
  Serious: Yes (Other)
  Sender: FDA-Public Use
  Company Number: US-PFIZER INC-202200797140

PATIENT
  Age: 62 Year
  Sex: Female

DRUGS (3)
  1. IBRANCE [Interacting]
     Active Substance: PALBOCICLIB
     Dosage: 125 MG, CYCLIC
     Dates: start: 20220522
  2. IBRANCE [Interacting]
     Active Substance: PALBOCICLIB
     Dosage: 100 MG
  3. OMEPRAZOLE [Interacting]
     Active Substance: OMEPRAZOLE
     Dosage: UNK, DAILY

REACTIONS (12)
  - Weight decreased [Unknown]
  - Nausea [Not Recovered/Not Resolved]
  - Vomiting [Unknown]
  - Rash pruritic [Recovering/Resolving]
  - White blood cell count decreased [Not Recovered/Not Resolved]
  - Diarrhoea [Unknown]
  - Fatigue [Not Recovered/Not Resolved]
  - Decreased appetite [Unknown]
  - Drug interaction [Unknown]
  - Alopecia [Unknown]
  - Platelet count decreased [Unknown]
  - Tumour marker increased [Unknown]

NARRATIVE: CASE EVENT DATE: 20220528
